FAERS Safety Report 8181848-7 (Version None)
Quarter: 2012Q1

REPORT INFORMATION
  Report Type: 
  Country: None (occurrence: None)
  Receive Date: 20120302
  Receipt Date: 20120301
  Transmission Date: 20120608
  Serious: Yes (Death, Other)
  Sender: FDA-Public Use
  Company Number: DE-ROCHE-1033498

PATIENT
  Sex: Female
  Weight: 76 kg

DRUGS (7)
  1. VERGENTAN [Concomitant]
     Dates: start: 20111223
  2. VINORELBINE TARTRATE [Suspect]
     Indication: BREAST CANCER
     Dosage: LAST DOSE PRIOR TO SAE: 19/JAN/2012
     Dates: start: 20111223, end: 20120208
  3. METAMIZOL [Concomitant]
     Dates: start: 20111223
  4. RETACRIT [Concomitant]
     Dates: start: 20111230
  5. AVASTIN [Suspect]
     Indication: BREAST CANCER
     Dosage: LAST DOSE PRIOR TO SAE: 19/JAN/2012
     Dates: start: 20111223
  6. ZOLEDRONIC [Concomitant]
     Dates: start: 20111129
  7. XELODA [Suspect]
     Indication: BREAST CANCER
     Dosage: LAST DOSE PRIOR TO SAE: 19/JAN/2012
     Dates: start: 20111223

REACTIONS (2)
  - PULMONARY EMBOLISM [None]
  - ASPIRATION [None]
